FAERS Safety Report 4897188-5 (Version None)
Quarter: 2006Q1

REPORT INFORMATION
  Report Type: 
  Country: None (occurrence: None)
  Receive Date: 20060131
  Receipt Date: 20050415
  Transmission Date: 20060701
  Serious: Yes (Hospitalization)
  Sender: FDA-Public Use
  Company Number: AU-MERCK-0504AUS00157

PATIENT
  Age: 73 Year
  Sex: Male

DRUGS (4)
  1. FOSAMAX [Suspect]
     Indication: OSTEITIS DEFORMANS
     Route: 048
     Dates: start: 19980101, end: 20030101
  2. AMLODIPINE BESYLATE [Concomitant]
     Route: 065
  3. TRAMADOL HYDROCHLORIDE [Concomitant]
     Route: 065
  4. PERINDOPRIL [Concomitant]
     Route: 065

REACTIONS (2)
  - OSTEONECROSIS [None]
  - TOOTH DISORDER [None]
